FAERS Safety Report 8771374 (Version 2)
Quarter: 2013Q1

REPORT INFORMATION
  Report Type: Spontaneous
  Country: CA (occurrence: CA)
  Receive Date: 20120906
  Receipt Date: 20130220
  Transmission Date: 20140127
  Serious: Yes (Other)
  Sender: FDA-Public Use
  Company Number: CA-GLAXOSMITHKLINE-A0991173A

PATIENT
  Age: 26 Year
  Sex: Male
  Weight: 95.8 kg

DRUGS (3)
  1. VOTRIENT [Suspect]
     Indication: SARCOMA
     Dosage: 800MG PER DAY
     Route: 048
     Dates: start: 20120820, end: 20130128
  2. NASONEX [Concomitant]
     Dosage: 1SPR PER DAY
  3. MULTIVITAMINS [Concomitant]

REACTIONS (5)
  - Left atrial dilatation [Unknown]
  - Chest discomfort [Unknown]
  - Chest pain [Not Recovered/Not Resolved]
  - Back pain [Unknown]
  - Malignant neoplasm progression [Not Recovered/Not Resolved]
